FAERS Safety Report 17876903 (Version 1)
Quarter: 2020Q2

REPORT INFORMATION
  Report Type: Spontaneous
  Country: FR (occurrence: FR)
  Receive Date: 20200609
  Receipt Date: 20200609
  Transmission Date: 20200714
  Serious: Yes (Hospitalization)
  Sender: FDA-Public Use
  Company Number: FR-ELI_LILLY_AND_COMPANY-FR202006000411

PATIENT
  Age: 5 Year
  Sex: Female
  Weight: 16 kg

DRUGS (2)
  1. SOLUPRED [PREDNISOLONE METASULFOBENZOATE SODIUM] [Suspect]
     Active Substance: PREDNISOLONE SODIUM METAZOATE
     Indication: DERMATOMYOSITIS
     Dosage: 30 MG, UNKNOWN
     Route: 048
     Dates: start: 20190723, end: 20191230
  2. OLUMIANT [Suspect]
     Active Substance: BARICITINIB
     Indication: DERMATOMYOSITIS
     Dosage: 4 MG, UNKNOWN
     Route: 048
     Dates: start: 20191125

REACTIONS (3)
  - Psoas abscess [Recovering/Resolving]
  - Clostridium difficile colitis [Recovered/Resolved]
  - Off label use [Unknown]

NARRATIVE: CASE EVENT DATE: 20191125
